FAERS Safety Report 5947127-0 (Version None)
Quarter: 2008Q4

REPORT INFORMATION
  Report Type: 
  Country: None (occurrence: None)
  Receive Date: 20081110
  Receipt Date: 20081030
  Transmission Date: 20090506
  Serious: Yes (Hospitalization)
  Sender: FDA-Public Use
  Company Number: JP-JNJFOC-20080406128

PATIENT
  Sex: Male
  Weight: 70 kg

DRUGS (18)
  1. REMICADE [Suspect]
     Dosage: INFUSIONS 2 THROUGH 14
     Route: 042
  2. REMICADE [Suspect]
     Dosage: INFUSIONS 2 THROUGH 13
     Route: 042
  3. REMICADE [Suspect]
     Dosage: INFUSIONS 2 THROUGH 13
     Route: 042
  4. REMICADE [Suspect]
     Dosage: INFUSIONS 2 THROUGH 13
     Route: 042
  5. REMICADE [Suspect]
     Dosage: INFUSIONS 2 THROUGH 13
     Route: 042
  6. REMICADE [Suspect]
     Indication: RHEUMATOID ARTHRITIS
     Route: 042
  7. PREDONINE [Concomitant]
     Route: 048
  8. PREDONINE [Concomitant]
     Indication: RHEUMATOID ARTHRITIS
     Route: 048
  9. GASLON N [Concomitant]
     Indication: GASTROINTESTINAL DISORDER THERAPY
     Route: 048
  10. FOLIAMIN [Concomitant]
     Indication: RHEUMATOID ARTHRITIS
     Route: 048
  11. ZANTAC [Concomitant]
     Indication: GASTROINTESTINAL DISORDER THERAPY
     Route: 048
  12. ISCONTIN [Concomitant]
     Indication: ANTIBIOTIC PROPHYLAXIS
     Route: 048
  13. CELECOX [Concomitant]
     Indication: RHEUMATOID ARTHRITIS
     Route: 048
  14. GOLD SODIUM THIOMALATE [Concomitant]
  15. SULFASALAZINE [Concomitant]
  16. METOLATE [Concomitant]
     Route: 048
  17. METOLATE [Concomitant]
     Route: 048
  18. METOLATE [Concomitant]
     Indication: RHEUMATOID ARTHRITIS
     Route: 048

REACTIONS (1)
  - TUBERCULOUS PLEURISY [None]
